FAERS Safety Report 10715172 (Version 1)
Quarter: 2015Q1

REPORT INFORMATION
  Report Type: Spontaneous
  Country: GB (occurrence: GB)
  Receive Date: 20150115
  Receipt Date: 20150115
  Transmission Date: 20150721
  Serious: Yes (Other)
  Sender: FDA-Public Use
  Company Number: PHHY2015GB003137

PATIENT
  Sex: Female

DRUGS (2)
  1. MEPACT [Suspect]
     Active Substance: MIFAMURTIDE
     Indication: PRODUCT USED FOR UNKNOWN INDICATION
     Dosage: UNK (TWICE A WEEK)
     Route: 065
  2. METHOTREXATE [Suspect]
     Active Substance: METHOTREXATE
     Indication: PRODUCT USED FOR UNKNOWN INDICATION
     Dosage: UNK (HIGH DOSE)
     Route: 065

REACTIONS (2)
  - Quadriplegia [Unknown]
  - Leukoencephalopathy [Unknown]
